FAERS Safety Report 7341029-3 (Version None)
Quarter: 2011Q1

REPORT INFORMATION
  Report Type: 
  Country: None (occurrence: None)
  Receive Date: 20110309
  Receipt Date: 20110225
  Transmission Date: 20110831
  Serious: Yes (Death, Hospitalization)
  Sender: FDA-Public Use
  Company Number: US-ACTELION-A-NJ2011-44466

PATIENT

DRUGS (2)
  1. TRACLEER [Suspect]
     Indication: PULMONARY ARTERIAL HYPERTENSION
     Dosage: 62.5 MG, UNK
     Route: 048
     Dates: start: 20100820, end: 20101115
  2. CALCIUM CHANNEL BLOCKERS [Concomitant]

REACTIONS (4)
  - INTERSTITIAL LUNG DISEASE [None]
  - CARDIAC ARREST [None]
  - RESPIRATORY FAILURE [None]
  - CONCOMITANT DISEASE AGGRAVATED [None]
